FAERS Safety Report 15725144 (Version 1)
Quarter: 2018Q4

REPORT INFORMATION
  Report Type: Report from Study
  Country: GB (occurrence: GB)
  Receive Date: 20181215
  Receipt Date: 20181215
  Transmission Date: 20190205
  Serious: Yes (Hospitalization)
  Sender: FDA-Public Use
  Company Number: GB-ROCHE-2022924

PATIENT
  Sex: Female

DRUGS (1)
  1. ROACTEMRA [Suspect]
     Active Substance: TOCILIZUMAB
     Indication: RHEUMATOID ARTHRITIS
     Route: 058
     Dates: start: 20171013

REACTIONS (10)
  - Nasopharyngitis [Unknown]
  - Pyrexia [Unknown]
  - Malaise [Unknown]
  - Bone swelling [Unknown]
  - Oropharyngeal pain [Unknown]
  - Pain [Unknown]
  - Pneumonia [Unknown]
  - Condition aggravated [Unknown]
  - Insomnia [Unknown]
  - Wheezing [Unknown]
